FAERS Safety Report 10516420 (Version 3)
Quarter: 2015Q1

REPORT INFORMATION
  Report Type: Spontaneous
  Country: US (occurrence: US)
  Receive Date: 20141014
  Receipt Date: 20150212
  Transmission Date: 20150720
  Serious: Yes (Hospitalization, Other)
  Sender: FDA-Public Use
  Company Number: US-BAYER-2014-149959

PATIENT
  Age: 33 Year
  Sex: Female
  Weight: 126.98 kg

DRUGS (6)
  1. VICODIN [Concomitant]
     Active Substance: ACETAMINOPHEN\HYDROCODONE BITARTRATE
  2. IBUPROFEN. [Concomitant]
     Active Substance: IBUPROFEN
  3. CIPRO [Concomitant]
     Active Substance: CIPROFLOXACIN HYDROCHLORIDE
  4. FERROUS SULFATE [Concomitant]
     Active Substance: FERROUS SULFATE\FERROUS SULFATE, DRIED
  5. SERTRALINE HYDROCHLORIDE. [Concomitant]
     Active Substance: SERTRALINE HYDROCHLORIDE
  6. MIRENA [Suspect]
     Active Substance: LEVONORGESTREL
     Indication: CONTRACEPTION
     Dosage: 20 MCG/DL, CONT
     Route: 015
     Dates: start: 20081113, end: 20110917

REACTIONS (18)
  - Uterine perforation [None]
  - Pelvic pain [None]
  - Mental disorder [None]
  - Scar [None]
  - Procedural pain [None]
  - Device difficult to use [None]
  - Emotional distress [None]
  - Anxiety [None]
  - Abdominal pain [None]
  - Genital haemorrhage [None]
  - Infertility female [None]
  - Post procedural discomfort [None]
  - Injury [None]
  - Uterine adhesions [None]
  - Device issue [None]
  - Peritoneal adhesions [None]
  - Pelvic discomfort [None]
  - Depression [None]

NARRATIVE: CASE EVENT DATE: 20081113
